FAERS Safety Report 9193962 (Version 1)
Quarter: 2013Q1

REPORT INFORMATION
  Report Type: Spontaneous
  Country: US (occurrence: US)
  Receive Date: 20130327
  Receipt Date: 20130327
  Transmission Date: 20140127
  Serious: Yes (Other)
  Sender: FDA-Public Use
  Company Number: CHPA2013US005206

PATIENT
  Age: 75 Year
  Sex: Female

DRUGS (1)
  1. BENEFIBER [Suspect]
     Indication: BOWEL MOVEMENT IRREGULARITY
     Dosage: ONE SPOONFUL IN THE MORNING
     Route: 065

REACTIONS (6)
  - Ovarian cancer [Unknown]
  - Colitis [Unknown]
  - Oesophageal disorder [Unknown]
  - Off label use [Unknown]
  - Therapeutic response unexpected [Unknown]
  - Incorrect dose administered [Unknown]
